FAERS Safety Report 5333948-4 (Version None)
Quarter: 2007Q2

REPORT INFORMATION
  Report Type: 
  Country: None (occurrence: None)
  Receive Date: 20070524
  Receipt Date: 20070514
  Transmission Date: 20071010
  Serious: Yes (Other)
  Sender: FDA-Public Use
  Company Number: HQWYE466427JUL04

PATIENT
  Sex: Female

DRUGS (6)
  1. PREMPRO [Suspect]
  2. PREMARIN [Suspect]
  3. ESTRACE [Suspect]
  4. FEMHRT [Suspect]
  5. PROVERA [Suspect]
  6. MEDROXYPROGESTERONE ACETATE [Suspect]

REACTIONS (1)
  - BREAST CANCER METASTATIC [None]
